FAERS Safety Report 22286082 (Version 5)
Quarter: 2024Q2

REPORT INFORMATION
  Report Type: Spontaneous
  Country: US (occurrence: US)
  Receive Date: 20230505
  Receipt Date: 20240516
  Transmission Date: 20240715
  Serious: No
  Sender: FDA-Public Use
  Company Number: US-SA-SAC20230502001277

PATIENT
  Age: 66 Year
  Sex: Female

DRUGS (3)
  1. DUPIXENT [Suspect]
     Active Substance: DUPILUMAB
     Indication: Dermatitis atopic
     Dosage: 300 MG, QOW
     Route: 058
     Dates: start: 202301
  2. DUPIXENT [Suspect]
     Active Substance: DUPILUMAB
     Dosage: 300 MG, QW
     Route: 058
  3. TAGRISSO [Suspect]
     Active Substance: OSIMERTINIB
     Indication: Metastases to lung

REACTIONS (13)
  - Tendonitis [Unknown]
  - Blister [Unknown]
  - Fatigue [Unknown]
  - Tendon pain [Recovering/Resolving]
  - Food allergy [Unknown]
  - Dry skin [Unknown]
  - Muscle spasms [Unknown]
  - Nausea [Unknown]
  - Myalgia [Recovering/Resolving]
  - Pruritus [Unknown]
  - Rash [Unknown]
  - Arthralgia [Recovering/Resolving]
  - Inappropriate schedule of product administration [Unknown]

NARRATIVE: CASE EVENT DATE: 20230101
